FAERS Safety Report 13265836 (Version 2)
Quarter: 2017Q1

REPORT INFORMATION
  Report Type: Report from Study
  Country: DE (occurrence: DE)
  Receive Date: 20170223
  Receipt Date: 20170315
  Transmission Date: 20170428
  Serious: Yes (Hospitalization)
  Sender: FDA-Public Use
  Company Number: PHHO2017DE003609

PATIENT
  Age: 47 Year
  Sex: Female
  Weight: 95.6 kg

DRUGS (12)
  1. SOM230 [Suspect]
     Active Substance: PASIREOTIDE
     Indication: PITUITARY-DEPENDENT CUSHING^S SYNDROME
     Dosage: 40 MG, Q4W
     Route: 030
     Dates: start: 20161215
  2. SUPRADYN [Concomitant]
     Active Substance: ASCORBIC ACID\MINERALS\VITAMINS
     Indication: SUPPLEMENTATION THERAPY
     Dosage: 1 TABLET/DIE
     Route: 048
     Dates: start: 201101
  3. UNIZINK [Concomitant]
     Active Substance: AVOBENZONE\HOMOSALATE\OCTISALATE
     Indication: SUPPLEMENTATION THERAPY
     Dosage: 1 TABLET/DIE
     Route: 048
     Dates: start: 20160608
  4. SOM230 [Suspect]
     Active Substance: PASIREOTIDE
     Dosage: 50 MG/28 DAYS
     Route: 030
     Dates: start: 20140826, end: 20151020
  5. SOM230 [Suspect]
     Active Substance: PASIREOTIDE
     Dosage: 50 MG/28 DAYS
     Route: 030
     Dates: start: 20151202, end: 20160419
  6. CEFASEL [Concomitant]
     Indication: PRODUCT USED FOR UNKNOWN INDICATION
     Dosage: 1 TABLET/DIE
     Route: 048
     Dates: start: 20160608
  7. CLINOVIR [Concomitant]
     Indication: CONTRACEPTION
     Dosage: 1 SHOT EVERY 3 MONTHS
     Route: 030
     Dates: start: 20130517
  8. THYROXINE [Concomitant]
     Active Substance: LEVOTHYROXINE
     Indication: HYPOTHYROIDISM
     Dosage: 175 MG, QD
     Route: 048
     Dates: start: 20150923
  9. CHOLECALCIFEROL [Concomitant]
     Active Substance: CHOLECALCIFEROL
     Indication: VITAMIN D DEFICIENCY
     Dosage: 1 SHOT EVERY 3 MONTHS
     Route: 058
     Dates: start: 201606
  10. VITAMIN A [Concomitant]
     Active Substance: VITAMIN A
     Indication: SUPPLEMENTATION THERAPY
     Dosage: 2 TABLETS/DIE
     Route: 048
     Dates: start: 20160608
  11. SOM230 [Suspect]
     Active Substance: PASIREOTIDE
     Dosage: 50 MG/28 DAYS
     Route: 030
     Dates: start: 20160517, end: 20161108
  12. FERRO-SANOL DUODENAL [Concomitant]
     Active Substance: FERROUS GLYCINE SULFATE
     Indication: ANAEMIA
     Dosage: 2 TABLETS/DIE
     Route: 048
     Dates: start: 201605

REACTIONS (2)
  - Suture related complication [Recovered/Resolved]
  - Hyperinsulinaemia [Recovered/Resolved]

NARRATIVE: CASE EVENT DATE: 201509
